FAERS Safety Report 15401938 (Version 1)
Quarter: 2018Q3

REPORT INFORMATION
  Report Type: Spontaneous
  Country: ES (occurrence: ES)
  Receive Date: 20180919
  Receipt Date: 20180919
  Transmission Date: 20181010
  Serious: Yes (Other)
  Sender: FDA-Public Use
  Company Number: ES-ABBVIE-18K-144-2488130-00

PATIENT
  Age: 57 Year
  Sex: Male

DRUGS (4)
  1. HUMIRA [Suspect]
     Active Substance: ADALIMUMAB
     Indication: AXIAL SPONDYLOARTHRITIS
     Route: 058
     Dates: end: 201806
  2. HUMIRA [Suspect]
     Active Substance: ADALIMUMAB
     Indication: AXIAL SPONDYLOARTHRITIS
     Route: 058
     Dates: start: 201610
  3. METOJECT [Suspect]
     Active Substance: METHOTREXATE SODIUM
     Indication: AXIAL SPONDYLOARTHRITIS
     Dosage: 25 MG / 0.50 ML OF SOLUCION FOR INJECTABLE
     Route: 058
     Dates: start: 201610, end: 201806
  4. LEDERFOLIN [Concomitant]
     Active Substance: LEUCOVORIN CALCIUM
     Indication: PRODUCT USED FOR UNKNOWN INDICATION
     Dosage: 15 MILLIGRAM 10 TABLETS
     Route: 048
     Dates: start: 201610, end: 201806

REACTIONS (2)
  - Cellulitis [Recovered/Resolved]
  - Epidermolysis [Recovered/Resolved]

NARRATIVE: CASE EVENT DATE: 201806
